FAERS Safety Report 7351981-8 (Version None)
Quarter: 2011Q1

REPORT INFORMATION
  Report Type: 
  Country: None (occurrence: None)
  Receive Date: 20110310
  Receipt Date: 20110310
  Transmission Date: 20110831
  Serious: Yes (Hospitalization)
  Sender: FDA-Public Use
  Company Number: None

PATIENT
  Sex: Female
  Weight: 99.7913 kg

DRUGS (3)
  1. LITHIUM [Suspect]
     Dates: start: 19960101, end: 19980101
  2. INVEGA [Suspect]
     Indication: BIPOLAR DISORDER
     Dosage: 6 MG 1 X ORAL
     Route: 048
     Dates: start: 20110213, end: 20110218
  3. DEPAKOTE [Suspect]
     Dates: start: 19960101, end: 19980101

REACTIONS (5)
  - WEIGHT INCREASED [None]
  - NECK MASS [None]
  - THYROID DISORDER [None]
  - CUSHINGOID [None]
  - MANIA [None]
